FAERS Safety Report 5030413-9 (Version None)
Quarter: 2006Q2

REPORT INFORMATION
  Report Type: 
  Country: None (occurrence: None)
  Receive Date: 20060615
  Receipt Date: 20060602
  Transmission Date: 20061013
  Serious: Yes (Life-Threatening, Hospitalization, Other)
  Sender: FDA-Public Use
  Company Number: HQWYE956705JUN06

PATIENT
  Age: 53 Year
  Sex: Female
  Weight: 66.28 kg

DRUGS (1)
  1. PREMPRO [Suspect]
     Indication: MENOPAUSAL SYMPTOMS
     Dosage: 1 TABLET 1X PER 1 DAY, ORAL
     Route: 048
     Dates: start: 20060412, end: 20060514

REACTIONS (1)
  - IDIOPATHIC THROMBOCYTOPENIC PURPURA [None]
